FAERS Safety Report 9469857 (Version 4)
Quarter: 2013Q4

REPORT INFORMATION
  Report Type: Spontaneous
  Country: US (occurrence: US)
  Receive Date: 20130822
  Receipt Date: 20131007
  Transmission Date: 20140711
  Serious: Yes (Hospitalization, Other)
  Sender: FDA-Public Use
  Company Number: US-JNJFOC-20130809931

PATIENT
  Sex: Male

DRUGS (1)
  1. RISPERDAL [Suspect]
     Indication: PRODUCT USED FOR UNKNOWN INDICATION
     Route: 048
     Dates: start: 1995, end: 2003

REACTIONS (9)
  - Diabetes mellitus [Not Recovered/Not Resolved]
  - Cerebrovascular accident [Unknown]
  - Headache [Unknown]
  - Pyrexia [Unknown]
  - Musculoskeletal stiffness [Unknown]
  - Tremor [Unknown]
  - Weight increased [Not Recovered/Not Resolved]
  - Myalgia [Unknown]
  - Sexual dysfunction [Unknown]
